FAERS Safety Report 12991228 (Version 2)
Quarter: 2018Q1

REPORT INFORMATION
  Report Type: Report from Study
  Country: JP (occurrence: JP)
  Receive Date: 20161201
  Receipt Date: 20180205
  Transmission Date: 20180508
  Serious: Yes (Death, Life-Threatening, Hospitalization)
  Sender: FDA-Public Use
  Company Number: JP-SA-2016SA125824

PATIENT
  Age: 72 Year
  Sex: Male
  Weight: 38 kg

DRUGS (9)
  1. MABCAMPATH [Suspect]
     Active Substance: ALEMTUZUMAB
     Indication: CHRONIC LYMPHOCYTIC LEUKAEMIA RECURRENT
     Route: 042
     Dates: start: 20160704, end: 20160704
  2. MABCAMPATH [Suspect]
     Active Substance: ALEMTUZUMAB
     Indication: CHRONIC LYMPHOCYTIC LEUKAEMIA RECURRENT
     Dosage: FREQUENCY: 1-3 TIMES WEEKLY
     Route: 042
     Dates: start: 20160711, end: 20160722
  3. CALONAL [Concomitant]
     Active Substance: ACETAMINOPHEN
     Indication: PROPHYLAXIS
     Dosage: DOSE:400 MG, ONLY ON THE DAY OF MABCAMPATH THERAPY
     Route: 048
     Dates: start: 20160704
  4. MABCAMPATH [Suspect]
     Active Substance: ALEMTUZUMAB
     Indication: CHRONIC LYMPHOCYTIC LEUKAEMIA RECURRENT
     Route: 042
     Dates: start: 20160705, end: 20160705
  5. TALION [Concomitant]
     Active Substance: BEPOTASTINE
     Indication: PROPHYLAXIS
     Dosage: DOSE: 15 MG, ONLY ON THE DAY OF MABCAMPATH THERAPY
     Route: 048
     Dates: start: 20160704
  6. MABCAMPATH [Suspect]
     Active Substance: ALEMTUZUMAB
     Indication: CHRONIC LYMPHOCYTIC LEUKAEMIA RECURRENT
     Route: 042
     Dates: start: 20160706, end: 20160706
  7. MABCAMPATH [Suspect]
     Active Substance: ALEMTUZUMAB
     Indication: CHRONIC LYMPHOCYTIC LEUKAEMIA RECURRENT
     Dosage: FREQUENCY: 1-2 TIMES WEEKLY
     Route: 042
     Dates: start: 20160815, end: 20160901
  8. BAKTAR [Concomitant]
     Active Substance: SULFAMETHOXAZOLE\TRIMETHOPRIM
     Indication: INFECTION PROPHYLAXIS
     Route: 048
  9. VFEND [Concomitant]
     Active Substance: VORICONAZOLE
     Indication: INFECTION PROPHYLAXIS
     Route: 048

REACTIONS (4)
  - White blood cell count decreased [Not Recovered/Not Resolved]
  - Chronic lymphocytic leukaemia [Fatal]
  - Decreased appetite [Not Recovered/Not Resolved]
  - Herpes zoster [Recovered/Resolved with Sequelae]

NARRATIVE: CASE EVENT DATE: 20160707
